FAERS Safety Report 8026163-7 (Version None)
Quarter: 2012Q1

REPORT INFORMATION
  Report Type: 
  Country: None (occurrence: None)
  Receive Date: 20120105
  Receipt Date: 20110202
  Transmission Date: 20120608
  Serious: No
  Sender: FDA-Public Use
  Company Number: US-ABBOTT-11P-163-0702819-00

PATIENT
  Sex: Female
  Weight: 47.216 kg

DRUGS (4)
  1. SYNTHROID [Suspect]
     Indication: HYPOTHYROIDISM
     Dates: start: 20110101
  2. SYNTHROID [Suspect]
     Dates: start: 20091101, end: 20100101
  3. SYNTHROID [Suspect]
     Indication: HYPOTHYROIDISM
     Dates: start: 20100101, end: 20110101
  4. SYNTHROID [Suspect]

REACTIONS (3)
  - FEELING HOT [None]
  - BURNING SENSATION [None]
  - THYROID FUNCTION TEST ABNORMAL [None]
